FAERS Safety Report 7476994-7 (Version None)
Quarter: 2011Q2

REPORT INFORMATION
  Report Type: 
  Country: None (occurrence: None)
  Receive Date: 20110512
  Receipt Date: 20110103
  Transmission Date: 20111010
  Serious: No
  Sender: FDA-Public Use
  Company Number: US-BAYER-2011-001144

PATIENT
  Sex: Male

DRUGS (2)
  1. AVELOX [Suspect]
     Indication: PRODUCT USED FOR UNKNOWN INDICATION
  2. RITALIN [Concomitant]
     Indication: FATIGUE

REACTIONS (1)
  - HYPERVIGILANCE [None]
